FAERS Safety Report 6047779-3 (Version None)
Quarter: 2009Q1

REPORT INFORMATION
  Report Type: 
  Country: None (occurrence: None)
  Receive Date: 20090123
  Receipt Date: 20090114
  Transmission Date: 20090719
  Serious: Yes (Hospitalization, Other)
  Sender: FDA-Public Use
  Company Number: CA-AMGEN-QUU328571

PATIENT
  Sex: Male

DRUGS (15)
  1. ENBREL [Suspect]
     Indication: PSORIASIS
     Route: 058
     Dates: start: 20031204, end: 20081223
  2. DIGOXIN [Concomitant]
     Route: 048
     Dates: start: 20071201
  3. BISOPROLOL [Concomitant]
     Route: 048
     Dates: start: 20071201
  4. DILTIAZEM [Concomitant]
     Route: 048
     Dates: start: 20071201
  5. COUMADIN [Concomitant]
  6. ALLOPURINOL [Concomitant]
     Route: 048
  7. FUROSEMIDE [Concomitant]
     Route: 048
     Dates: start: 20071201
  8. ALDACTONE [Concomitant]
     Route: 048
     Dates: start: 20071201
  9. LEVOTHYROXINE SODIUM [Concomitant]
     Route: 048
  10. CELEXA [Concomitant]
     Route: 048
  11. ASPIRIN [Concomitant]
     Route: 048
     Dates: start: 20071201
  12. COLCHICINE [Concomitant]
     Route: 048
  13. ALBUTEROL SULFATE [Concomitant]
     Route: 055
  14. FLOVENT [Concomitant]
     Route: 055
  15. DIURETICS [Concomitant]

REACTIONS (6)
  - AORTIC VALVE REPLACEMENT [None]
  - CARDIAC FAILURE CONGESTIVE [None]
  - COUGH [None]
  - GOUT [None]
  - MITRAL VALVE REPLACEMENT [None]
  - THYROID DISORDER [None]
